FAERS Safety Report 10827878 (Version 1)
Quarter: 2015Q1

REPORT INFORMATION
  Report Type: Spontaneous
  Country: GB (occurrence: GB)
  Receive Date: 20150219
  Receipt Date: 20150219
  Transmission Date: 20150721
  Serious: Yes (Other)
  Sender: FDA-Public Use
  Company Number: GB-ROCHE-1539950

PATIENT
  Sex: Female

DRUGS (2)
  1. KEPPRA [Concomitant]
     Active Substance: LEVETIRACETAM
  2. RIVOTRIL [Suspect]
     Active Substance: CLONAZEPAM
     Indication: PRODUCT USED FOR UNKNOWN INDICATION
     Route: 042

REACTIONS (1)
  - Apparent death [Unknown]
